FAERS Safety Report 21708777 (Version 1)
Quarter: 2022Q4

REPORT INFORMATION
  Report Type: Report from Study
  Country: US (occurrence: US)
  Receive Date: 20221210
  Receipt Date: 20221210
  Transmission Date: 20230112
  Serious: No
  Sender: FDA-Public Use
  Company Number: US-ABBVIE-4183248

PATIENT
  Age: 50 Year
  Sex: Female

DRUGS (1)
  1. HUMIRA [Suspect]
     Active Substance: ADALIMUMAB
     Indication: Rheumatoid arthritis
     Dosage: CITRATE FREE
     Route: 058

REACTIONS (6)
  - Upper respiratory tract infection [Recovering/Resolving]
  - Asthenia [Unknown]
  - Nasal congestion [Unknown]
  - Sinus congestion [Unknown]
  - Illness [Unknown]
  - Aphonia [Unknown]

NARRATIVE: CASE EVENT DATE: 20220901
